FAERS Safety Report 7786845-9 (Version None)
Quarter: 2011Q3

REPORT INFORMATION
  Report Type: 
  Country: None (occurrence: None)
  Receive Date: 20110929
  Receipt Date: 20110921
  Transmission Date: 20111222
  Serious: Yes (Death, Life-Threatening, Hospitalization, Disabling, Other)
  Sender: FDA-Public Use
  Company Number: US-MERCK-1108USA03514

PATIENT
  Age: 56 Year
  Sex: Male
  Weight: 90 kg

DRUGS (7)
  1. ZOLPIDEM TARTRATE [Concomitant]
     Route: 065
  2. MERCAPTOPURINE [Concomitant]
     Route: 048
     Dates: start: 19910101
  3. FOLIC ACID [Concomitant]
     Route: 048
  4. LOMOTIL [Concomitant]
     Route: 048
  5. AZULFIDINE [Concomitant]
     Route: 048
     Dates: start: 19910101
  6. FOSAMAX [Suspect]
     Indication: OSTEOPOROSIS
     Route: 048
     Dates: start: 20041215, end: 20080901
  7. ZANTAC [Concomitant]
     Route: 048

REACTIONS (5)
  - OESOPHAGEAL CANCER METASTATIC [None]
  - METASTASES TO LIVER [None]
  - BONE DENSITY DECREASED [None]
  - DYSPEPSIA [None]
  - GALLBLADDER DISORDER [None]
